FAERS Safety Report 11496271 (Version 4)
Quarter: 2015Q4

REPORT INFORMATION
  Report Type: Report from Study
  Country: IT (occurrence: IT)
  Receive Date: 20150911
  Receipt Date: 20151028
  Transmission Date: 20160304
  Serious: Yes (Death, Hospitalization)
  Sender: FDA-Public Use
  Company Number: IT-ABBVIE-15P-083-1461328-00

PATIENT
  Sex: Male
  Weight: 65 kg

DRUGS (1)
  1. DUODOPA [Suspect]
     Active Substance: CARBIDOPA\LEVODOPA
     Indication: PRODUCT USED FOR UNKNOWN INDICATION
     Dosage: 3.30 ML/H CONTINUE
     Route: 050
     Dates: start: 20080307

REACTIONS (3)
  - Respiratory disorder [Fatal]
  - Cardiac arrest [Fatal]
  - Pyrexia [Fatal]

NARRATIVE: CASE EVENT DATE: 20150907
